FAERS Safety Report 6233792-X (Version None)
Quarter: 2009Q2

REPORT INFORMATION
  Report Type: 
  Country: None (occurrence: None)
  Receive Date: 20090612
  Receipt Date: 20090612
  Transmission Date: 20091009
  Serious: No
  Sender: FDA-Public Use
  Company Number: None

PATIENT
  Age: 71 Year
  Sex: Male
  Weight: 84.1 kg

DRUGS (1)
  1. ANDRODERM [Suspect]
     Indication: BLOOD TESTOSTERONE DECREASED
     Dosage: 5 MG QD TRANSDERMAL  HAS USE AT LEAST SINCE 12/0
     Route: 062
     Dates: start: 20081201

REACTIONS (1)
  - DEVICE ADHESION ISSUE [None]
